FAERS Safety Report 8890763 (Version 1)
Quarter: 2012Q4

REPORT INFORMATION
  Report Type: 
  Country: JP (occurrence: JP)
  Receive Date: 20121107
  Receipt Date: 20121107
  Transmission Date: 20130627
  Serious: Yes (Other)
  Sender: FDA-Public Use
  Company Number: JP-ROCHE-1152479

PATIENT
  Age: 8 Year
  Sex: Male
  Weight: 27 kg

DRUGS (4)
  1. PEGASYS [Suspect]
     Indication: CHRONIC HEPATITIS C
     Route: 058
     Dates: start: 20080717, end: 20080808
  2. PEGASYS [Suspect]
     Indication: CHRONIC HEPATITIS C
     Route: 058
     Dates: start: 20080815, end: 20091124
  3. CALONAL [Concomitant]
     Indication: PYREXIA
     Dosage: A dose
     Route: 048
     Dates: start: 20080717, end: 20080718
  4. RINDERON-VG [Concomitant]
     Indication: ECZEMA
     Dosage: Proper quantity
     Route: 003
     Dates: start: 20090526, end: 20090626

REACTIONS (3)
  - Failure to thrive [Recovering/Resolving]
  - Pyrexia [Recovering/Resolving]
  - Alopecia [Recovering/Resolving]
